FAERS Safety Report 8152553-8 (Version None)
Quarter: 2012Q1

REPORT INFORMATION
  Report Type: 
  Country: None (occurrence: None)
  Receive Date: 20120221
  Receipt Date: 20120210
  Transmission Date: 20120608
  Serious: Yes (Other)
  Sender: FDA-Public Use
  Company Number: US-JNJFOC-20120208894

PATIENT
  Sex: Female
  Weight: 124.74 kg

DRUGS (12)
  1. DURAGESIC-100 [Suspect]
     Indication: PAIN
     Route: 062
     Dates: start: 20030101
  2. PEPCID [Concomitant]
     Indication: ULCER
     Route: 048
     Dates: start: 20000101
  3. REGLAN [Concomitant]
     Indication: GASTRITIS
     Route: 048
     Dates: start: 20000101
  4. NEXIUM [Suspect]
     Indication: ULCER
     Route: 048
     Dates: start: 19990101, end: 20100101
  5. CARAFATE [Concomitant]
     Indication: GASTRITIS
     Route: 048
     Dates: start: 20020101
  6. CARAFATE [Concomitant]
     Indication: ULCER
     Route: 048
     Dates: start: 20020101
  7. REGLAN [Concomitant]
     Indication: ULCER
     Route: 048
     Dates: start: 20000101
  8. ELAVIL [Suspect]
     Indication: MIGRAINE
     Route: 048
     Dates: start: 20100101
  9. PEPCID [Concomitant]
     Indication: GASTRITIS
     Route: 048
     Dates: start: 20000101
  10. DURAGESIC-100 [Suspect]
     Route: 062
  11. NEXIUM [Suspect]
     Indication: GASTRITIS
     Route: 048
     Dates: start: 19990101, end: 20100101
  12. TOPAMAX [Concomitant]
     Indication: MIGRAINE PROPHYLAXIS
     Route: 048
     Dates: start: 19980101, end: 20100101

REACTIONS (5)
  - BENIGN INTRACRANIAL HYPERTENSION [None]
  - COMPLEX REGIONAL PAIN SYNDROME [None]
  - WRONG TECHNIQUE IN DRUG USAGE PROCESS [None]
  - ADVERSE EVENT [None]
  - PRODUCT QUALITY ISSUE [None]
